FAERS Safety Report 4982652-0 (Version None)
Quarter: 2006Q2

REPORT INFORMATION
  Report Type: 
  Country: None (occurrence: None)
  Receive Date: 20060419
  Receipt Date: 20060406
  Transmission Date: 20061013
  Serious: Yes (Hospitalization)
  Sender: FDA-Public Use
  Company Number: 2006048672

PATIENT
  Age: 75 Year
  Sex: Male

DRUGS (1)
  1. GEODON [Suspect]
     Indication: DELUSION
     Dosage: 40 MG (20 MG, 2 IN 1 D), UNKNOWN
     Route: 065

REACTIONS (3)
  - BRADYCARDIA [None]
  - DIZZINESS [None]
  - HYPOTENSION [None]
